FAERS Safety Report 8564449-8 (Version None)
Quarter: 2012Q3

REPORT INFORMATION
  Report Type: 
  Country: None (occurrence: None)
  Receive Date: 20120803
  Receipt Date: 20120724
  Transmission Date: 20120928
  Serious: Yes (Other)
  Sender: FDA-Public Use
  Company Number: NZ-SANOFI-AVENTIS-2012SA052495

PATIENT
  Age: 75 Year
  Sex: Male

DRUGS (3)
  1. ASPIRIN [Concomitant]
  2. ENOXAPARIN SODIUM [Suspect]
     Route: 065
  3. VALPROATE SODIUM [Concomitant]

REACTIONS (3)
  - CEREBRAL DISORDER [None]
  - CEREBRAL HAEMORRHAGE [None]
  - CONVULSION [None]
